FAERS Safety Report 7714987-2 (Version None)
Quarter: 2011Q3

REPORT INFORMATION
  Report Type: 
  Country: None (occurrence: None)
  Receive Date: 20110822
  Receipt Date: 20110808
  Transmission Date: 20111222
  Serious: Yes (Other)
  Sender: FDA-Public Use
  Company Number: 2011MA011514

PATIENT
  Age: 52 Year
  Sex: Male
  Weight: 110.6777 kg

DRUGS (5)
  1. GABAPENTIN [Suspect]
     Indication: INTERVERTEBRAL DISC PROTRUSION
     Dosage: 300 MG;TID
  2. SIMVASTATIN [Concomitant]
  3. VICODIN [Concomitant]
  4. LYRICA [Suspect]
     Indication: INTERVERTEBRAL DISC PROTRUSION
     Dosage: 300 MG;QD
     Dates: start: 20100101, end: 20110101
  5. ALPRAZOLAM [Concomitant]

REACTIONS (3)
  - SOMNOLENCE [None]
  - OEDEMA PERIPHERAL [None]
  - PERSONALITY CHANGE [None]
